FAERS Safety Report 12343197 (Version 1)
Quarter: 2016Q2

REPORT INFORMATION
  Report Type: Spontaneous
  Country: KR (occurrence: KR)
  Receive Date: 20160506
  Receipt Date: 20160506
  Transmission Date: 20160815
  Serious: Yes (Other)
  Sender: FDA-Public Use
  Company Number: KR-009507513-1605KOR003080

PATIENT
  Age: 74 Year
  Sex: Male
  Weight: 67 kg

DRUGS (31)
  1. EMEND (FOSAPREPITANT DIMEGLUMINE) [Suspect]
     Active Substance: FOSAPREPITANT DIMEGLUMINE
     Indication: PROPHYLAXIS OF NAUSEA AND VOMITING
     Dosage: 150 MG, ONCE
     Route: 042
     Dates: start: 20160225, end: 20160225
  2. DEXAMETHASONE. [Concomitant]
     Active Substance: DEXAMETHASONE
     Indication: PREMEDICATION
     Dosage: 4 MG, QD
     Route: 048
     Dates: start: 20160226, end: 20160226
  3. DEXAMETHASONE. [Concomitant]
     Active Substance: DEXAMETHASONE
     Dosage: STRENGTH: 5MH/ML; 10 MG, QD
     Route: 042
     Dates: start: 20160317, end: 20160317
  4. LASIX [Concomitant]
     Active Substance: FUROSEMIDE
     Indication: PROPHYLAXIS
     Dosage: 20 MG, QD
     Route: 042
     Dates: start: 20160225, end: 20160225
  5. MANNITOL. [Concomitant]
     Active Substance: MANNITOL
     Indication: PREMEDICATION
     Dosage: 250 ML, QD
     Route: 042
     Dates: start: 20160225, end: 20160225
  6. MANNITOL. [Concomitant]
     Active Substance: MANNITOL
     Dosage: 250 ML, QD
     Route: 042
     Dates: start: 20160317, end: 20160317
  7. ALIMTA [Concomitant]
     Active Substance: PEMETREXED DISODIUM
     Dosage: 800 MG, QD. CYCLE 2
     Route: 042
     Dates: start: 20160317, end: 20160317
  8. ALOXI [Concomitant]
     Active Substance: PALONOSETRON HYDROCHLORIDE
     Dosage: 5 ML, QD
     Route: 042
     Dates: start: 20160407, end: 20160407
  9. OTILLEN [Concomitant]
     Indication: GASTRITIS PROPHYLAXIS
     Dosage: 60 MG, TID
     Route: 048
     Dates: start: 20160126
  10. DEXAMETHASONE. [Concomitant]
     Active Substance: DEXAMETHASONE
     Indication: PREMEDICATION
     Dosage: STRENGTH: 5MH/ML; 10 MG, QD
     Route: 042
     Dates: start: 20160225, end: 20160225
  11. DEXAMETHASONE. [Concomitant]
     Active Substance: DEXAMETHASONE
     Dosage: STRENGTH: 5MH/ML; 10 MG, QD
     Route: 042
     Dates: start: 20160407, end: 20160407
  12. ALOXI [Concomitant]
     Active Substance: PALONOSETRON HYDROCHLORIDE
     Indication: PROPHYLAXIS OF NAUSEA AND VOMITING
     Dosage: 5 ML, QD
     Route: 042
     Dates: start: 20160225, end: 20160225
  13. FOLSAN [Concomitant]
     Active Substance: FOLIC ACID
     Indication: PREMEDICATION
     Dosage: 1 MG, QD
     Route: 048
     Dates: start: 20160126
  14. ACTINAMIDE [Concomitant]
     Indication: PREMEDICATION
     Dosage: 1 MG, QD
     Route: 030
     Dates: start: 20160407, end: 20160407
  15. URANTAC [Concomitant]
     Indication: PROPHYLAXIS
     Dosage: 100 MG, QD
     Route: 042
     Dates: start: 20160225, end: 20160225
  16. LASIX [Concomitant]
     Active Substance: FUROSEMIDE
     Dosage: 20 MG, QD
     Route: 042
     Dates: start: 20160317, end: 20160317
  17. MANNITOL. [Concomitant]
     Active Substance: MANNITOL
     Dosage: 250 ML, QD
     Route: 042
     Dates: start: 20160407, end: 20160407
  18. CISPLATIN. [Concomitant]
     Active Substance: CISPLATIN
     Indication: NON-SMALL CELL LUNG CANCER
     Dosage: 96 MG, QD. CYCLE 1
     Route: 042
     Dates: start: 20160225, end: 20160225
  19. CISPLATIN. [Concomitant]
     Active Substance: CISPLATIN
     Dosage: 96 MG, QD. CYCLE 2
     Route: 042
     Dates: start: 20160317, end: 20160317
  20. CISPLATIN. [Concomitant]
     Active Substance: CISPLATIN
     Dosage: 96 MG, QD. CYCLE 3
     Route: 042
     Dates: start: 20160407, end: 20160407
  21. URANTAC [Concomitant]
     Dosage: 100 MG, QD
     Route: 042
     Dates: start: 20160407, end: 20160407
  22. EMEND (FOSAPREPITANT DIMEGLUMINE) [Suspect]
     Active Substance: FOSAPREPITANT DIMEGLUMINE
     Dosage: 150 MG, ONCE
     Route: 042
     Dates: start: 20160407, end: 20160407
  23. ALIMTA [Concomitant]
     Active Substance: PEMETREXED DISODIUM
     Indication: NON-SMALL CELL LUNG CANCER
     Dosage: 800 MG, QD. CYCLE 1
     Route: 042
     Dates: start: 20160225, end: 20160225
  24. ALIMTA [Concomitant]
     Active Substance: PEMETREXED DISODIUM
     Dosage: 800 MG, QD. CYCLE 3
     Route: 042
     Dates: start: 20160407, end: 20160407
  25. DEXAMETHASONE. [Concomitant]
     Active Substance: DEXAMETHASONE
     Dosage: 4 MG, QD
     Route: 048
     Dates: start: 20160318, end: 20160318
  26. DEXAMETHASONE. [Concomitant]
     Active Substance: DEXAMETHASONE
     Dosage: 4 MG, QD
     Route: 048
     Dates: start: 20160408, end: 20160408
  27. URANTAC [Concomitant]
     Dosage: 100 MG, QD
     Route: 042
     Dates: start: 20160317, end: 20160317
  28. LASIX [Concomitant]
     Active Substance: FUROSEMIDE
     Dosage: 20 MG, QD
     Route: 042
     Dates: start: 20160407, end: 20160407
  29. EMEND (FOSAPREPITANT DIMEGLUMINE) [Suspect]
     Active Substance: FOSAPREPITANT DIMEGLUMINE
     Dosage: 150 MG, ONCE
     Route: 042
     Dates: start: 20160317, end: 20160317
  30. ALOXI [Concomitant]
     Active Substance: PALONOSETRON HYDROCHLORIDE
     Dosage: 5 ML, QD
     Route: 042
     Dates: start: 20160317, end: 20160317
  31. CODAEWON FORTE [Concomitant]
     Indication: COUGH
     Dosage: 20 ML, TID
     Route: 048
     Dates: start: 20160225

REACTIONS (4)
  - Decreased appetite [Recovered/Resolved]
  - Myalgia [Recovered/Resolved]
  - Hyperkalaemia [Recovered/Resolved]
  - Nausea [Recovered/Resolved]

NARRATIVE: CASE EVENT DATE: 20160310
